FAERS Safety Report 12497906 (Version 3)
Quarter: 2016Q3

REPORT INFORMATION
  Report Type: Spontaneous
  Country: GB (occurrence: GB)
  Receive Date: 20160625
  Receipt Date: 20160712
  Transmission Date: 20161109
  Serious: Yes (Hospitalization, Other)
  Sender: FDA-Public Use
  Company Number: GB-APOTEX-2016AP009463

PATIENT

DRUGS (11)
  1. VENLAFAXINE [Concomitant]
     Active Substance: VENLAFAXINE HYDROCHLORIDE
     Indication: PRODUCT USED FOR UNKNOWN INDICATION
     Dosage: UNK
     Route: 065
  2. ALCOHOL. [Concomitant]
     Active Substance: ALCOHOL
     Indication: PRODUCT USED FOR UNKNOWN INDICATION
     Dosage: UNK
     Route: 065
  3. PROZAC [Concomitant]
     Active Substance: FLUOXETINE HYDROCHLORIDE
     Indication: PRODUCT USED FOR UNKNOWN INDICATION
     Dosage: UNK
     Route: 065
     Dates: start: 20001101
  4. EFFEXOR [Concomitant]
     Active Substance: VENLAFAXINE HYDROCHLORIDE
     Indication: PRODUCT USED FOR UNKNOWN INDICATION
     Dosage: UNK
     Route: 065
     Dates: start: 20010910
  5. PAROXETINE. [Suspect]
     Active Substance: PAROXETINE
     Indication: DEPRESSION
     Dosage: 20 MG, QD
     Route: 048
     Dates: start: 19991117
  6. PAXIL [Suspect]
     Active Substance: PAROXETINE HYDROCHLORIDE
     Indication: ANXIETY
     Dosage: 30 MG, QD
     Route: 065
     Dates: start: 20020124
  7. PAXIL [Suspect]
     Active Substance: PAROXETINE HYDROCHLORIDE
     Indication: DEPRESSION
     Dosage: 40 MG, QD
     Route: 065
     Dates: start: 19991117, end: 20040609
  8. PAROXETINE. [Suspect]
     Active Substance: PAROXETINE
     Dosage: 20 MG, BID
     Route: 048
     Dates: start: 19991202, end: 20030731
  9. CIPRAMIL                           /00582602/ [Concomitant]
     Active Substance: CITALOPRAM HYDROBROMIDE
     Indication: PRODUCT USED FOR UNKNOWN INDICATION
     Dosage: UNK
     Route: 065
  10. PAROXETINE. [Suspect]
     Active Substance: PAROXETINE
     Indication: DEPRESSION
     Dosage: 5 ML, QD
     Route: 048
     Dates: start: 20020628, end: 20040105
  11. PAROXETINE. [Suspect]
     Active Substance: PAROXETINE
     Dosage: 40 MG, Q.H.S.
     Route: 065
     Dates: start: 20000711, end: 20020714

REACTIONS (33)
  - Withdrawal syndrome [Unknown]
  - Frustration tolerance decreased [Unknown]
  - Ejaculation failure [Unknown]
  - Social avoidant behaviour [Unknown]
  - Hyperhidrosis [Unknown]
  - Dizziness [Unknown]
  - Nausea [Unknown]
  - Tremor [Unknown]
  - Balance disorder [Unknown]
  - Overdose [Unknown]
  - Impatience [Unknown]
  - Parasomnia [Unknown]
  - Paraesthesia [Unknown]
  - Depression [Unknown]
  - Sleep disorder [Unknown]
  - Agitation [Unknown]
  - Anxiety [Unknown]
  - Abnormal dreams [Unknown]
  - Insomnia [Unknown]
  - Nightmare [Unknown]
  - Irritability [Unknown]
  - Electric shock [Unknown]
  - Aggression [Unknown]
  - Suicide attempt [Unknown]
  - Dependence [Unknown]
  - Disturbance in attention [Unknown]
  - Hyperacusis [Unknown]
  - Agoraphobia [Unknown]
  - Somnolence [Unknown]
  - Alcohol abuse [Unknown]
  - Paranoia [Unknown]
  - Gait disturbance [Unknown]
  - Amnesia [Unknown]

NARRATIVE: CASE EVENT DATE: 2000
